FAERS Safety Report 8056636-2 (Version None)
Quarter: 2012Q1

REPORT INFORMATION
  Report Type: 
  Country: None (occurrence: None)
  Receive Date: 20120119
  Receipt Date: 20120111
  Transmission Date: 20120608
  Serious: Yes (Other)
  Sender: FDA-Public Use
  Company Number: CHPA2012US001042

PATIENT
  Age: 62 Year
  Sex: Female

DRUGS (1)
  1. EXCEDRIN EXTRA STRENGTH CAPLETS [Suspect]
     Indication: BACK PAIN
     Dosage: 2-3 PER DAY
     Route: 048
     Dates: end: 20120110

REACTIONS (6)
  - BURNING SENSATION [None]
  - HYPERTENSION [None]
  - RASH [None]
  - PRURITUS [None]
  - INCORRECT DOSE ADMINISTERED [None]
  - ERYTHEMA [None]
